FAERS Safety Report 6632076-5 (Version None)
Quarter: 2010Q1

REPORT INFORMATION
  Report Type: 
  Country: None (occurrence: None)
  Receive Date: 20100312
  Receipt Date: 20090615
  Transmission Date: 20100710
  Serious: No
  Sender: FDA-Public Use
  Company Number: US-BIOGENIDEC-2009BI018214

PATIENT
  Sex: Female

DRUGS (4)
  1. AVONEX [Suspect]
     Indication: MULTIPLE SCLEROSIS
     Route: 030
     Dates: start: 20090427
  2. AVONEX [Suspect]
     Route: 030
     Dates: start: 20090503, end: 20090501
  3. AVONEX [Suspect]
     Route: 030
     Dates: start: 20090517, end: 20090501
  4. AVONEX [Suspect]
     Route: 030
     Dates: start: 20090531

REACTIONS (6)
  - ANAEMIA [None]
  - DYSPNOEA [None]
  - GINGIVAL BLEEDING [None]
  - INFLUENZA LIKE ILLNESS [None]
  - SENSATION OF PRESSURE [None]
  - SKIN HAEMORRHAGE [None]
